FAERS Safety Report 7928554-9 (Version None)
Quarter: 2011Q4

REPORT INFORMATION
  Report Type: 
  Country: None (occurrence: None)
  Receive Date: 20111118
  Receipt Date: 20111108
  Transmission Date: 20120403
  Serious: Yes (Hospitalization, Other)
  Sender: FDA-Public Use
  Company Number: AR-BRISTOL-MYERS SQUIBB COMPANY-16222531

PATIENT
  Age: 52 Year
  Sex: Female

DRUGS (3)
  1. ORENCIA [Suspect]
     Dosage: LAST DOSE ON 23OCT11
     Dates: start: 20090901
  2. METHOTREXATE [Concomitant]
  3. ASPIRIN [Concomitant]

REACTIONS (17)
  - CHEST DISCOMFORT [None]
  - DIARRHOEA [None]
  - HEADACHE [None]
  - PRURITUS GENERALISED [None]
  - EATING DISORDER [None]
  - ABDOMINAL DISTENSION [None]
  - PERICARDIAL EFFUSION [None]
  - NEUROLOGICAL SYMPTOM [None]
  - ACNE [None]
  - ANXIETY [None]
  - FUNGAL INFECTION [None]
  - DRY EYE [None]
  - THROMBOSIS [None]
  - PULMONARY FIBROSIS [None]
  - GLAUCOMA [None]
  - OROPHARYNGEAL BLISTERING [None]
  - NASAL DRYNESS [None]
